FAERS Safety Report 5492823-5 (Version None)
Quarter: 2007Q4

REPORT INFORMATION
  Report Type: 
  Country: None (occurrence: None)
  Receive Date: 20071019
  Receipt Date: 20071010
  Transmission Date: 20080405
  Serious: Yes (Disabling, Other)
  Sender: FDA-Public Use
  Company Number: 17631

PATIENT
  Sex: Female

DRUGS (2)
  1. EPIRUBICIN [Suspect]
     Indication: RHABDOMYOSARCOMA
     Dosage: 350 MG/M2
  2. RADIOTHERAPY [Concomitant]

REACTIONS (8)
  - ATRIAL THROMBOSIS [None]
  - BLOOD CREATINE PHOSPHOKINASE INCREASED [None]
  - CARDIAC FAILURE CONGESTIVE [None]
  - DILATATION VENTRICULAR [None]
  - INTRACARDIAC THROMBUS [None]
  - LEG AMPUTATION [None]
  - PARVOVIRUS INFECTION [None]
  - PERIPHERAL ISCHAEMIA [None]
